FAERS Safety Report 13667230 (Version 1)
Quarter: 2017Q2

REPORT INFORMATION
  Report Type: Spontaneous
  Country: US (occurrence: US)
  Receive Date: 20170619
  Receipt Date: 20170619
  Transmission Date: 20170830
  Serious: Yes (Other)
  Sender: FDA-Public Use
  Company Number: US-TEVA-778858USA

PATIENT
  Age: 27 Year
  Sex: Male

DRUGS (17)
  1. FLUOXETINE [Concomitant]
     Active Substance: FLUOXETINE HYDROCHLORIDE
     Indication: INTENTIONAL SELF-INJURY
     Dosage: 60MG BY PEG DAILY
     Route: 065
  2. PIPERACILLIN AND TAZOBACTAM [Concomitant]
     Active Substance: PIPERACILLIN SODIUM\TAZOBACTAM SODIUM
     Indication: PNEUMONIA ASPIRATION
     Route: 065
  3. CLONIDINE. [Suspect]
     Active Substance: CLONIDINE
     Indication: INTENTIONAL SELF-INJURY
     Dosage: 0.1MG BY PEJ 3 TIMES A DAY
     Route: 065
  4. VALPROIC ACID. [Suspect]
     Active Substance: VALPROIC ACID
     Indication: INTENTIONAL SELF-INJURY
     Dosage: 250MG/5ML SOLUTION 5ML BY PEJ THRICE A DAY
     Route: 065
  5. BUSPIRONE [Concomitant]
     Active Substance: BUSPIRONE HYDROCHLORIDE
     Indication: INTENTIONAL SELF-INJURY
     Dosage: 20MG BY PEG DAILY
     Route: 065
  6. OXYCODONE [Concomitant]
     Active Substance: OXYCODONE
     Indication: ANALGESIC THERAPY
     Dosage: 2.5 MG BY PEG EVERY 6 HOURS PRO RE NATA
     Route: 065
  7. VANCOMYCIN [Concomitant]
     Active Substance: VANCOMYCIN
     Indication: PNEUMONIA ASPIRATION
     Route: 065
  8. GABAPENTIN. [Suspect]
     Active Substance: GABAPENTIN
     Indication: INTENTIONAL SELF-INJURY
     Dosage: 800MG BY PEJ 3 TIMES A DAY
     Route: 065
  9. RISPERIDONE. [Concomitant]
     Active Substance: RISPERIDONE
     Indication: INTENTIONAL SELF-INJURY
     Route: 065
  10. FENTANYL. [Concomitant]
     Active Substance: FENTANYL
     Dosage: 25MCG OCCASIONAL ONE TIME DOSE
     Route: 042
  11. NALOXONE [Concomitant]
     Active Substance: NALOXONE
     Dosage: ON 3 SEPERATE DAYS WITH 1 MG1 2.3 AND 1.4 MG RESPECTIVELY
  12. CHLORPROMAZINE. [Suspect]
     Active Substance: CHLORPROMAZINE
     Indication: INTENTIONAL SELF-INJURY
     Dosage: UPTO 350MG IN A DAY
     Route: 042
  13. OLANZAPINE. [Suspect]
     Active Substance: OLANZAPINE
     Indication: INTENTIONAL SELF-INJURY
     Dosage: UPTO 40MG BY PEJ IN A DAY
     Route: 065
  14. HALOPERIDOL. [Suspect]
     Active Substance: HALOPERIDOL
     Indication: INTENTIONAL SELF-INJURY
     Dosage: 30MG IN A DAY
     Route: 042
  15. GABAPENTIN. [Suspect]
     Active Substance: GABAPENTIN
     Indication: INTENTIONAL SELF-INJURY
     Dosage: 500MG BY PEG 4 TIMES A DAY
     Route: 065
  16. RISPERIDONE. [Concomitant]
     Active Substance: RISPERIDONE
     Indication: INTENTIONAL SELF-INJURY
     Dosage: 2MG BY PEG DAILY
     Route: 065
  17. LORAZEPAM. [Concomitant]
     Active Substance: LORAZEPAM
     Indication: INTENTIONAL SELF-INJURY
     Dosage: 2MG/ML; 1ML EVERY 6 HRS BY PEG AS NEEDED
     Route: 065

REACTIONS (6)
  - Hypotension [Unknown]
  - Bradycardia [Unknown]
  - Transaminases increased [Unknown]
  - Hyperammonaemia [Unknown]
  - Sedation [Unknown]
  - Electrocardiogram QT prolonged [Unknown]
